FAERS Safety Report 7022599-1 (Version None)
Quarter: 2010Q3

REPORT INFORMATION
  Report Type: 
  Country: None (occurrence: None)
  Receive Date: 20100930
  Receipt Date: 20100922
  Transmission Date: 20110219
  Serious: Yes (Hospitalization)
  Sender: FDA-Public Use
  Company Number: CH-PFIZER INC-2010120023

PATIENT
  Age: 75 Year
  Sex: Male

DRUGS (11)
  1. ALDACTONE [Suspect]
     Dosage: 25 MG, 1X/DAY
     Route: 048
  2. LASIX [Suspect]
     Dosage: 125 MG, 2X/DAY
     Route: 048
     Dates: start: 20070101, end: 20090323
  3. TOREM [Suspect]
     Dosage: 1 DF, 1X/DAY
     Route: 048
     Dates: start: 20090301, end: 20090401
  4. MARCUMAR [Concomitant]
     Dosage: 1 DF, AS NEEDED
     Route: 048
     Dates: start: 19950101
  5. CORDARONE [Concomitant]
     Dosage: 200 MG, 1X/DAY
     Route: 048
     Dates: start: 19930101
  6. SIMVASTATIN [Concomitant]
     Dosage: 20 MG, 1X/DAY
     Route: 048
  7. METOPROLOL SUCCINATE [Concomitant]
     Dosage: 25 MG, 2X/DAY
     Route: 048
  8. COZAAR [Concomitant]
     Dosage: 50 MG, 1X/DAY
     Route: 048
  9. SERTRALINE [Concomitant]
     Dosage: 1 DF, 1X/DAY
     Route: 048
  10. XANAX [Concomitant]
     Dosage: 0.5 MG, 1X/DAY
     Route: 048
     Dates: end: 20090301
  11. XANAX [Concomitant]
     Dosage: 0.5 MG, 1X/DAY
     Route: 048
     Dates: start: 20090401

REACTIONS (4)
  - ORTHOSTATIC HYPOTENSION [None]
  - PARAESTHESIA [None]
  - RENAL FAILURE CHRONIC [None]
  - SYNCOPE [None]
